FAERS Safety Report 7409495-2 (Version None)
Quarter: 2011Q2

REPORT INFORMATION
  Report Type: 
  Country: None (occurrence: None)
  Receive Date: 20110407
  Receipt Date: 20110407
  Transmission Date: 20111010
  Serious: Yes (Hospitalization)
  Sender: FDA-Public Use
  Company Number: None

PATIENT
  Age: 82 Year
  Sex: Male

DRUGS (1)
  1. WARFARIN SODIUM [Suspect]
     Indication: PULMONARY EMBOLISM
     Dosage: 5 MG OTHER PO
     Route: 048
     Dates: start: 20100202, end: 20110325

REACTIONS (9)
  - ANAEMIA [None]
  - BLOOD GLUCOSE INCREASED [None]
  - BLOOD GLUCOSE DECREASED [None]
  - FALL [None]
  - CONTUSION [None]
  - DYSARTHRIA [None]
  - HAEMORRHAGE [None]
  - FAECES DISCOLOURED [None]
  - CONFUSIONAL STATE [None]
